FAERS Safety Report 8922108 (Version 2)
Quarter: 2013Q1

REPORT INFORMATION
  Report Type: Spontaneous
  Country: CA (occurrence: CA)
  Receive Date: 20121123
  Receipt Date: 20130110
  Transmission Date: 20140127
  Serious: Yes (Death, Hospitalization)
  Sender: FDA-Public Use
  Company Number: PHHY2012CA106477

PATIENT
  Age: 62 Year
  Sex: Male

DRUGS (1)
  1. AFINITOR [Suspect]
     Indication: RENAL CELL CARCINOMA
     Dosage: 10 MG, DAILY
     Route: 048
     Dates: start: 20121029

REACTIONS (4)
  - Death [Fatal]
  - Memory impairment [Unknown]
  - Loss of consciousness [Unknown]
  - Malaise [Unknown]
